FAERS Safety Report 10250377 (Version 2)
Quarter: 2014Q4

REPORT INFORMATION
  Report Type: Spontaneous
  Country: US (occurrence: None)
  Receive Date: 20140618
  Receipt Date: 20141031
  Transmission Date: 20150528
  Serious: Yes (Other)
  Sender: FDA-Public Use
  Company Number: ADR-2014-01036

PATIENT
  Age: 42 Year
  Sex: Male

DRUGS (3)
  1. BACLOFEN INTRATHECAL [Suspect]
     Active Substance: BACLOFEN
     Indication: PAIN
     Dosage: 201.11MCG/DAY
  2. MORPHINE [Suspect]
     Active Substance: MORPHINE
  3. PRIALT [Suspect]
     Active Substance: ZICONOTIDE ACETATE
     Indication: PAIN
     Dosage: 2.5139MCG/DAY

REACTIONS (5)
  - Crying [None]
  - Drug tolerance [None]
  - Impaired work ability [None]
  - Drug withdrawal syndrome [None]
  - Pain [None]
